FAERS Safety Report 10855608 (Version 1)
Quarter: 2015Q1

REPORT INFORMATION
  Report Type: Spontaneous
  Country: US (occurrence: None)
  Receive Date: 20150218
  Receipt Date: 20150218
  Transmission Date: 20150721
  Serious: Yes (Other)
  Sender: FDA-Public Use
  Company Number: None

PATIENT

DRUGS (1)
  1. PREVAGEN [Suspect]
     Active Substance: DIETARY SUPPLEMENT
     Route: 048

REACTIONS (6)
  - Pallor [None]
  - Vision blurred [None]
  - Headache [None]
  - Vertigo [None]
  - Nausea [None]
  - Chest pain [None]

NARRATIVE: CASE EVENT DATE: 20150207
